FAERS Safety Report 14184067 (Version 1)
Quarter: 2017Q4

REPORT INFORMATION
  Report Type: Spontaneous
  Country: JP (occurrence: JP)
  Receive Date: 20171113
  Receipt Date: 20171113
  Transmission Date: 20180321
  Serious: Yes (Disabling)
  Sender: FDA-Public Use
  Company Number: JP-BAYER-2017-213755

PATIENT

DRUGS (1)
  1. NEXAVAR [Suspect]
     Active Substance: SORAFENIB
     Indication: HEPATOCELLULAR CARCINOMA
     Dosage: 400 MG, QD
     Route: 048
     Dates: start: 2017, end: 20171027

REACTIONS (3)
  - Monoplegia [Not Recovered/Not Resolved]
  - Chronic inflammatory demyelinating polyradiculoneuropathy [Not Recovered/Not Resolved]
  - Muscular weakness [Not Recovered/Not Resolved]

NARRATIVE: CASE EVENT DATE: 20171027
